FAERS Safety Report 5984922-6 (Version None)
Quarter: 2008Q4

REPORT INFORMATION
  Report Type: 
  Country: None (occurrence: None)
  Receive Date: 20081208
  Receipt Date: 20081114
  Transmission Date: 20090506
  Serious: Yes (Hospitalization)
  Sender: FDA-Public Use
  Company Number: US-AMGEN-QUU315786

PATIENT
  Sex: Male
  Weight: 109 kg

DRUGS (4)
  1. ENBREL [Suspect]
     Indication: PSORIASIS
     Route: 030
     Dates: start: 20050101, end: 20080807
  2. ENBREL [Suspect]
     Indication: PSORIATIC ARTHROPATHY
  3. MONOPRIL [Concomitant]
  4. LOVASTATIN [Concomitant]

REACTIONS (1)
  - THROAT CANCER [None]
